FAERS Safety Report 16461435 (Version 3)
Quarter: 2019Q3

REPORT INFORMATION
  Report Type: Spontaneous
  Country: JP (occurrence: JP)
  Receive Date: 20190620
  Receipt Date: 20190728
  Transmission Date: 20191004
  Serious: Yes (Hospitalization, Other)
  Sender: FDA-Public Use
  Company Number: JP-009507513-1906JPN004721

PATIENT
  Age: 31 Year
  Sex: Female
  Weight: 44.9 kg

DRUGS (5)
  1. MENOTROPINS [Suspect]
     Active Substance: MENOTROPINS
     Dosage: 1275 INTERNATIONAL UNIT
  2. GONADOTROPIN, CHORIONIC [Suspect]
     Active Substance: CHORIOGONADOTROPIN ALFA
     Indication: OVULATION DISORDER
     Dosage: 10,000 INTERNATIONAL UNIT
  3. CLOMIPHENE CITRATE. [Suspect]
     Active Substance: CLOMIPHENE CITRATE
     Indication: OVULATION DISORDER
     Dosage: 250 MILLIGRAM
  4. MENOTROPINS [Suspect]
     Active Substance: MENOTROPINS
     Indication: OVULATION DISORDER
     Dosage: 375 IU
  5. CLOMIPHENE CITRATE. [Suspect]
     Active Substance: CLOMIPHENE CITRATE
     Dosage: 250 MILLIGRAM

REACTIONS (5)
  - Abdominal pain [Recovered/Resolved]
  - Aplasia pure red cell [Not Recovered/Not Resolved]
  - Ovarian hyperstimulation syndrome [Recovering/Resolving]
  - Haemoconcentration [Recovered/Resolved]
  - Ascites [Recovered/Resolved]
